FAERS Safety Report 11183553 (Version 2)
Quarter: 2015Q3

REPORT INFORMATION
  Report Type: Report from Study
  Country: DE (occurrence: DE)
  Receive Date: 20150612
  Receipt Date: 20150713
  Transmission Date: 20151125
  Serious: Yes (Other)
  Sender: FDA-Public Use
  Company Number: PHHY2014DE163873

PATIENT
  Age: 30 Year
  Sex: Female
  Weight: 63 kg

DRUGS (3)
  1. GILENYA [Suspect]
     Active Substance: FINGOLIMOD HYDROCHLORIDE
     Indication: MULTIPLE SCLEROSIS
     Dosage: 0.5 MG, QD
     Route: 048
     Dates: start: 20141105, end: 20141130
  2. GILENYA [Suspect]
     Active Substance: FINGOLIMOD HYDROCHLORIDE
     Dosage: 0.5 MG, EVERY THIRD DAY
     Route: 048
     Dates: start: 20150224, end: 20150415
  3. GILENYA [Suspect]
     Active Substance: FINGOLIMOD HYDROCHLORIDE
     Dosage: 0.5 MG, QOD (EVERY OTHER DAY)
     Route: 048
     Dates: start: 20141201

REACTIONS (8)
  - Lymphocyte count decreased [Not Recovered/Not Resolved]
  - Infection [Recovering/Resolving]
  - Nasopharyngitis [Recovered/Resolved]
  - Vulvovaginal mycotic infection [Recovered/Resolved]
  - Prescribed underdose [Unknown]
  - White blood cell count decreased [Not Recovered/Not Resolved]
  - Blood count abnormal [Recovering/Resolving]
  - Off label use [Unknown]

NARRATIVE: CASE EVENT DATE: 20141118
